FAERS Safety Report 4942720-6 (Version None)
Quarter: 2006Q1

REPORT INFORMATION
  Report Type: 
  Country: None (occurrence: None)
  Receive Date: 20060314
  Receipt Date: 20060227
  Transmission Date: 20060701
  Serious: Yes (Hospitalization, Other)
  Sender: FDA-Public Use
  Company Number: US-AMGEN-STX170366

PATIENT
  Sex: Female

DRUGS (1)
  1. ENBREL [Suspect]
     Indication: RHEUMATOID ARTHRITIS
     Route: 058
     Dates: start: 19950101, end: 20050901

REACTIONS (7)
  - COLON CANCER METASTATIC [None]
  - CONDITION AGGRAVATED [None]
  - MALAISE [None]
  - RHEUMATOID ARTHRITIS [None]
  - SKIN LESION [None]
  - SPINAL DISORDER [None]
  - WEIGHT DECREASED [None]
